FAERS Safety Report 5050158-9 (Version None)
Quarter: 2006Q2

REPORT INFORMATION
  Report Type: 
  Country: None (occurrence: None)
  Receive Date: 20060614
  Receipt Date: 20060410
  Transmission Date: 20061013
  Serious: Yes (Other)
  Sender: FDA-Public Use
  Company Number: 444399

PATIENT
  Age: 56 Year
  Sex: Female
  Weight: 47.6 kg

DRUGS (3)
  1. BONIVA [Suspect]
     Indication: ARTHRITIS
     Dosage: 150 MG   1 PER MONTH  ORAL
     Route: 048
     Dates: start: 20060201, end: 20060301
  2. BONIVA [Suspect]
     Indication: PROPHYLAXIS
     Dosage: 150 MG   1 PER MONTH  ORAL
     Route: 048
     Dates: start: 20060201, end: 20060301
  3. PRILOSEC [Concomitant]

REACTIONS (3)
  - CHEST PAIN [None]
  - GASTROOESOPHAGEAL REFLUX DISEASE [None]
  - OESOPHAGEAL SPASM [None]
